FAERS Safety Report 7625931-0 (Version None)
Quarter: 2011Q3

REPORT INFORMATION
  Report Type: 
  Country: None (occurrence: None)
  Receive Date: 20110721
  Receipt Date: 20110721
  Transmission Date: 20111222
  Serious: Yes (Hospitalization)
  Sender: FDA-Public Use
  Company Number: None

PATIENT
  Age: 67 Year
  Sex: Female
  Weight: 68.038 kg

DRUGS (1)
  1. NUCYNTA [Suspect]
     Indication: TOOTH EXTRACTION
     Dosage: 50 MG
     Route: 048

REACTIONS (2)
  - HEADACHE [None]
  - VOMITING [None]
